FAERS Safety Report 15612255 (Version 2)
Quarter: 2018Q4

REPORT INFORMATION
  Report Type: Spontaneous
  Country: US (occurrence: US)
  Receive Date: 20181113
  Receipt Date: 20181115
  Transmission Date: 20190205
  Serious: Yes (Other)
  Sender: FDA-Public Use
  Company Number: US-ALKERMES INC.-ALK-2018-005073

PATIENT
  Age: 62 Year
  Sex: Female

DRUGS (1)
  1. VIVITROL [Suspect]
     Active Substance: NALTREXONE
     Indication: ALCOHOLISM
     Dosage: 380 MG, QMO
     Route: 030
     Dates: start: 20180622

REACTIONS (3)
  - Eye disorder [Recovering/Resolving]
  - Visual field defect [Recovering/Resolving]
  - Eye contusion [Recovering/Resolving]

NARRATIVE: CASE EVENT DATE: 20181101
